FAERS Safety Report 25619507 (Version 3)
Quarter: 2025Q3

REPORT INFORMATION
  Report Type: Spontaneous
  Country: GB (occurrence: GB)
  Receive Date: 20250729
  Receipt Date: 20250814
  Transmission Date: 20251021
  Serious: Yes (Disabling, Other)
  Sender: VERITY PHARMACEUTICALS INC.
  Company Number: GB-VER-202500010

PATIENT
  Age: 51 Year
  Sex: Female
  Weight: 62 kg

DRUGS (3)
  1. TRIPTORELIN PAMOATE [Suspect]
     Active Substance: TRIPTORELIN PAMOATE
     Indication: Uterine leiomyoma
     Route: 065
     Dates: start: 20250224, end: 20250714
  2. CODEINE [Concomitant]
     Active Substance: CODEINE
     Indication: Pain
     Route: 065
     Dates: start: 20250627
  3. TIBOLONE [Concomitant]
     Active Substance: TIBOLONE
     Indication: Hormone therapy
     Route: 065
     Dates: start: 20250214

REACTIONS (12)
  - Bone pain [Not Recovered/Not Resolved]
  - Insomnia [Not Recovered/Not Resolved]
  - Coccydynia [Not Recovered/Not Resolved]
  - Depressed mood [Not Recovered/Not Resolved]
  - Gingival bleeding [Not Recovered/Not Resolved]
  - Pain in extremity [Not Recovered/Not Resolved]
  - Hot flush [Not Recovered/Not Resolved]
  - Hyperventilation [Not Recovered/Not Resolved]
  - Arthralgia [Not Recovered/Not Resolved]
  - Confusional state [Not Recovered/Not Resolved]
  - Mobility decreased [Not Recovered/Not Resolved]
  - Neck pain [Not Recovered/Not Resolved]

NARRATIVE: CASE EVENT DATE: 20250228
